FAERS Safety Report 6831845-6 (Version None)
Quarter: 2010Q3

REPORT INFORMATION
  Report Type: 
  Country: None (occurrence: None)
  Receive Date: 20100712
  Receipt Date: 20100705
  Transmission Date: 20110219
  Serious: Yes (Other)
  Sender: FDA-Public Use
  Company Number: JP-PFIZER INC-2010083377

PATIENT
  Sex: Female

DRUGS (1)
  1. ATARAX [Suspect]
     Indication: URTICARIA
     Dosage: 50 MG, 3X/DAY
     Route: 048

REACTIONS (1)
  - DYSPNOEA [None]
